FAERS Safety Report 10516940 (Version 1)
Quarter: 2014Q4

REPORT INFORMATION
  Report Type: Spontaneous
  Country: US (occurrence: None)
  Receive Date: 20141003
  Receipt Date: 20141003
  Transmission Date: 20150528
  Serious: Yes (Hospitalization)
  Sender: FDA-Public Use
  Company Number: 1060851

PATIENT
  Age: 47 Year
  Sex: Male

DRUGS (4)
  1. PEGINTRON [Suspect]
     Active Substance: PEGINTERFERON ALFA-2B
     Indication: CHRONIC HEPATITIS C
     Dates: start: 20120417
  2. IBUPROFEN (IBUPROFEN) [Concomitant]
     Active Substance: IBUPROFEN
  3. COPEGUS [Suspect]
     Active Substance: RIBAVIRIN
     Indication: CHRONIC HEPATITIS C
     Dosage: THERAPY SUSPENDED FOR ONE MONTH (DAILY N DIVIDED DOSES), ORAL
     Route: 048
     Dates: start: 20120417
  4. PEGASYS [Suspect]
     Active Substance: PEGINTERFERON ALFA-2A
     Indication: CHRONIC HEPATITIS C
     Route: 058
     Dates: start: 201208

REACTIONS (13)
  - Anaemia [None]
  - Neutropenia [None]
  - Blood glucose increased [None]
  - Myalgia [None]
  - Arthralgia [None]
  - White blood cell count decreased [None]
  - Drug ineffective [None]
  - Chills [None]
  - Pyrexia [None]
  - Haematochezia [None]
  - Red blood cell count decreased [None]
  - Local swelling [None]
  - Blood potassium decreased [None]
